FAERS Safety Report 9395642 (Version 1)
Quarter: 2013Q3

REPORT INFORMATION
  Report Type: Other
  Country: US (occurrence: US)
  Receive Date: 20130711
  Receipt Date: 20130711
  Transmission Date: 20140515
  Serious: Yes (Hospitalization)
  Sender: FDA-Public Use
  Company Number: US-SPECTRUM PHARMACEUTICALS, INC.-13-F-US-00197

PATIENT
  Age: 43 Year
  Sex: Female
  Weight: 103 kg

DRUGS (6)
  1. FOLOTYN [Suspect]
     Indication: PERIPHERAL T-CELL LYMPHOMA UNSPECIFIED
     Dosage: 40 MG/M2, 1XW
     Route: 042
     Dates: start: 20130605
  2. LEVOTHYROXINE [Concomitant]
     Indication: HYPOTHYROIDISM
     Dosage: 120 MCG, QD
     Route: 048
  3. OMEPRAZOLE [Concomitant]
     Indication: MUCOSAL INFLAMMATION
     Dosage: QD
     Route: 048
     Dates: start: 20130616
  4. CEPHALEXIN [Concomitant]
     Indication: SKIN INFECTION
     Dosage: UNK UNK, UNK
     Route: 048
  5. FOLIC ACID [Concomitant]
     Indication: PRODUCT USED FOR UNKNOWN INDICATION
     Dosage: 1 MG, UNK
     Route: 048
  6. DOCUSATE [Concomitant]
     Indication: PRODUCT USED FOR UNKNOWN INDICATION
     Dosage: 50/8.5, MG, BID, PRN
     Route: 048

REACTIONS (4)
  - Myocarditis [Unknown]
  - Abdominal pain [Not Recovered/Not Resolved]
  - Troponin I [Unknown]
  - Musculoskeletal chest pain [Unknown]
